FAERS Safety Report 17396594 (Version 3)
Quarter: 2020Q1

REPORT INFORMATION
  Report Type: Spontaneous
  Country: US (occurrence: US)
  Receive Date: 20200210
  Receipt Date: 20200309
  Transmission Date: 20200409
  Serious: No
  Sender: FDA-Public Use
  Company Number: US-PFIZER INC-2020054777

PATIENT
  Age: 71 Year
  Sex: Female
  Weight: 73.3 kg

DRUGS (3)
  1. ESTRING [Suspect]
     Active Substance: ESTRADIOL
     Indication: VULVOVAGINAL DRYNESS
  2. ESTRING [Suspect]
     Active Substance: ESTRADIOL
     Indication: MENOPAUSE
  3. ESTRING [Suspect]
     Active Substance: ESTRADIOL
     Indication: ATROPHIC VULVOVAGINITIS
     Dosage: 2 MG, EVERY 3 MONTHS (INSERT RING INTO YOUR VAGINAL ONCE EVERY 3 MONTHS)
     Route: 067

REACTIONS (7)
  - Urine odour abnormal [Not Recovered/Not Resolved]
  - Cystitis [Unknown]
  - Drug ineffective [Unknown]
  - Product quality issue [Unknown]
  - Infection [Unknown]
  - Vulvovaginal burning sensation [Recovering/Resolving]
  - Malaise [Unknown]

NARRATIVE: CASE EVENT DATE: 202001
